FAERS Safety Report 7900630-6 (Version None)
Quarter: 2011Q4

REPORT INFORMATION
  Report Type: 
  Country: None (occurrence: None)
  Receive Date: 20111104
  Receipt Date: 20111020
  Transmission Date: 20120403
  Serious: Yes (Death, Congenital Anomaly)
  Sender: FDA-Public Use
  Company Number: ALLO20110028

PATIENT
  Age: 0 Week
  Sex: Male
  Weight: 3.59 kg

DRUGS (2)
  1. ALLOPURINOL TAB [Suspect]
     Indication: MATERNAL DRUGS AFFECTING FOETUS
     Dosage: 300 MG, 1 IN 1 D, VIA PLACENTA
  2. METHYLDOPA [Concomitant]

REACTIONS (20)
  - DIAPHRAGMATIC HERNIA [None]
  - MICROTIA [None]
  - CARDIOPULMONARY FAILURE [None]
  - ACCESSORY SPLEEN [None]
  - FOETAL EXPOSURE DURING PREGNANCY [None]
  - HYDROCEPHALUS [None]
  - COLOBOMA [None]
  - ACROCHORDON [None]
  - CLEFT LIP AND PALATE [None]
  - SINGLE FUNCTIONAL KIDNEY [None]
  - CAESAREAN SECTION [None]
  - HYPERTELORISM OF ORBIT [None]
  - KIDNEY ENLARGEMENT [None]
  - OPTIC ATROPHY [None]
  - PULMONARY HYPOPLASIA [None]
  - MICROPHTHALMOS [None]
  - EXTERNAL AUDITORY CANAL ATRESIA [None]
  - CRYPTORCHISM [None]
  - CONGENITAL DIAPHRAGMATIC ANOMALY [None]
  - CONGENITAL CENTRAL NERVOUS SYSTEM ANOMALY [None]
